APPROVED DRUG PRODUCT: DECITABINE
Active Ingredient: DECITABINE
Strength: 50MG/VIAL
Dosage Form/Route: POWDER;INTRAVENOUS
Application: N205582 | Product #001
Applicant: SUN PHARMACEUTICAL INDUSTRIES LTD
Approved: Jan 28, 2014 | RLD: Yes | RS: No | Type: DISCN